FAERS Safety Report 7482867-6 (Version None)
Quarter: 2011Q2

REPORT INFORMATION
  Report Type: 
  Country: None (occurrence: None)
  Receive Date: 20110516
  Receipt Date: 20100212
  Transmission Date: 20111010
  Serious: Yes (Other)
  Sender: FDA-Public Use
  Company Number: DE-GENENTECH-318434

PATIENT
  Age: 75 Year
  Sex: Female

DRUGS (1)
  1. LUCENTIS [Suspect]
     Indication: AGE-RELATED MACULAR DEGENERATION
     Dosage: UNK
     Route: 031
     Dates: start: 20091201

REACTIONS (9)
  - DEPOSIT EYE [None]
  - VISUAL ACUITY REDUCED [None]
  - LYME DISEASE [None]
  - CORNEAL ABRASION [None]
  - HYPERSENSITIVITY [None]
  - GASTROINTESTINAL DISORDER [None]
  - BLOOD PRESSURE FLUCTUATION [None]
  - METAMORPHOPSIA [None]
  - EYE DISORDER [None]
